FAERS Safety Report 16332480 (Version 1)
Quarter: 2019Q2

REPORT INFORMATION
  Report Type: Spontaneous
  Country: US (occurrence: US)
  Receive Date: 20190520
  Receipt Date: 20190520
  Transmission Date: 20190711
  Serious: No
  Sender: FDA-Public Use
  Company Number: US-PFIZER INC-2019207964

PATIENT
  Age: 30 Year
  Sex: Female

DRUGS (1)
  1. EUCRISA [Suspect]
     Active Substance: CRISABOROLE
     Indication: DERMATITIS ATOPIC
     Dosage: UNK (APPLYING EVERY OTHER DAY)
     Dates: start: 201805

REACTIONS (4)
  - Off label use [Unknown]
  - Application site paraesthesia [Unknown]
  - Skin discolouration [Unknown]
  - Product use issue [Unknown]
